FAERS Safety Report 5104736-9 (Version None)
Quarter: 2006Q3

REPORT INFORMATION
  Report Type: 
  Country: None (occurrence: None)
  Receive Date: 20060914
  Receipt Date: 20060905
  Transmission Date: 20061208
  Serious: Yes (Hospitalization)
  Sender: FDA-Public Use
  Company Number: US-KINGPHARMUSA00001-K200601126

PATIENT
  Age: 87 Year
  Sex: Female

DRUGS (8)
  1. ALTACE [Suspect]
     Dosage: 1.25 MG, QD
     Route: 048
  2. LASILIX [Suspect]
     Dosage: 80 MG, QD
     Route: 042
  3. AUGMENTIN '125' [Concomitant]
     Dosage: 3 G, UNK
     Route: 042
  4. MORPHINE SULFATE [Concomitant]
     Route: 048
  5. ACETAMINOPHEN [Concomitant]
     Dosage: 2 G, UNK
     Route: 048
  6. MOPRAL [Concomitant]
     Dosage: 20 MG, UNK
     Route: 048
  7. HEPARIN [Concomitant]
  8. ACUPAN [Concomitant]
     Dosage: 2 U, UNK
     Route: 015

REACTIONS (4)
  - BLOOD CREATININE INCREASED [None]
  - DEHYDRATION [None]
  - PYREXIA [None]
  - RENAL FAILURE ACUTE [None]
